FAERS Safety Report 8560878-7 (Version None)
Quarter: 2012Q3

REPORT INFORMATION
  Report Type: 
  Country: None (occurrence: None)
  Receive Date: 20120802
  Receipt Date: 20120720
  Transmission Date: 20120928
  Serious: Yes (Other)
  Sender: FDA-Public Use
  Company Number: CH-GENZYME-CLOF-1002228

PATIENT
  Sex: Male
  Weight: 55 kg

DRUGS (4)
  1. CLOFARABINE [Suspect]
     Indication: ACUTE MYELOID LEUKAEMIA
     Dosage: 100 MG, UNK
     Route: 042
     Dates: start: 20120613
  2. CLOFARABINE [Suspect]
     Dosage: UNK
     Route: 065
     Dates: start: 20120720
  3. IDARUBICIN HCL [Suspect]
     Indication: ACUTE MYELOID LEUKAEMIA
     Dosage: 20 MG, UNK
     Route: 042
     Dates: start: 20120613
  4. CYTARABINE [Suspect]
     Indication: ACUTE MYELOID LEUKAEMIA
     Dosage: 330 MG, UNK
     Route: 042
     Dates: start: 20120613

REACTIONS (1)
  - LUNG NEOPLASM [None]
